FAERS Safety Report 5355442-7 (Version None)
Quarter: 2007Q2

REPORT INFORMATION
  Report Type: 
  Country: None (occurrence: None)
  Receive Date: 20070611
  Receipt Date: 20070611
  Transmission Date: 20071010
  Serious: Yes (Hospitalization)
  Sender: FDA-Public Use
  Company Number: None

PATIENT
  Sex: Female
  Weight: 54.4316 kg

DRUGS (1)
  1. FLUTAMIDE [Suspect]
     Indication: ACNE
     Dosage: 125 MG TWICE DAILY ORAL
     Route: 048
     Dates: start: 20051004, end: 20070424

REACTIONS (1)
  - MAJOR DEPRESSION [None]
